FAERS Safety Report 25435187 (Version 1)
Quarter: 2025Q2

REPORT INFORMATION
  Report Type: Spontaneous
  Country: JP (occurrence: JP)
  Receive Date: 20250613
  Receipt Date: 20250613
  Transmission Date: 20250717
  Serious: Yes (Death, Hospitalization)
  Sender: MERCK SHARP & DOHME LLC
  Company Number: JP-MSD-2307JPN003050J

PATIENT
  Age: 8 Year

DRUGS (2)
  1. KEYTRUDA [Suspect]
     Active Substance: PEMBROLIZUMAB
     Indication: Brain stem glioma
  2. KEYTRUDA [Suspect]
     Active Substance: PEMBROLIZUMAB
     Indication: Brain stem glioma
     Dosage: DOSE DESCRIPTION : 2 MILLIGRAM/KILOGRAM, Q3W?DAILY DOSE : 0.094 MILLIGRAM/KILOGRAM?REGIMEN DOSE :...
     Route: 041
     Dates: start: 202308

REACTIONS (3)
  - Malignant neoplasm progression [Fatal]
  - Pyrexia [Unknown]
  - Off label use [Unknown]

NARRATIVE: CASE EVENT DATE: 20230801
